FAERS Safety Report 9769017 (Version 1)
Quarter: 2013Q4

REPORT INFORMATION
  Report Type: Spontaneous
  Country: US (occurrence: None)
  Receive Date: 20131217
  Receipt Date: 20131217
  Transmission Date: 20140711
  Serious: No
  Sender: FDA-Public Use
  Company Number: None

PATIENT
  Sex: Female

DRUGS (1)
  1. ARIMIDEX [Suspect]
     Indication: BREAST CANCER
     Dosage: Q DAY
     Route: 048
     Dates: start: 20130823, end: 20131127

REACTIONS (3)
  - Fatigue [None]
  - Arthralgia [None]
  - Bone pain [None]
